FAERS Safety Report 6911256-5 (Version None)
Quarter: 2010Q3

REPORT INFORMATION
  Report Type: 
  Country: None (occurrence: None)
  Receive Date: 20100806
  Receipt Date: 20100726
  Transmission Date: 20110219
  Serious: Yes (Other)
  Sender: FDA-Public Use
  Company Number: PHHY2010AU48824

PATIENT
  Sex: Male

DRUGS (4)
  1. GLEEVEC [Suspect]
     Indication: CHRONIC MYELOID LEUKAEMIA
     Dosage: 400 UNK, UNK
     Route: 048
     Dates: start: 20090926, end: 20100605
  2. GLEEVEC [Interacting]
     Dosage: UNK
  3. METFORMIN HCL [Interacting]
     Dosage: UNK
  4. REANDRON [Concomitant]

REACTIONS (3)
  - HYPERCHLORHYDRIA [None]
  - OESOPHAGEAL MASS [None]
  - OESOPHAGEAL OPERATION [None]
